FAERS Safety Report 8091048-7 (Version None)
Quarter: 2012Q1

REPORT INFORMATION
  Report Type: 
  Country: None (occurrence: None)
  Receive Date: 20120128
  Receipt Date: 20110729
  Transmission Date: 20120608
  Serious: No
  Sender: FDA-Public Use
  Company Number: US-ABBOTT-11P-163-0843064-00

PATIENT
  Sex: Male
  Weight: 82.628 kg

DRUGS (5)
  1. MEDROL [Suspect]
     Indication: RHEUMATOID ARTHRITIS
     Dosage: 1/2 PILL DAILY FOR 2 WEEKS
     Route: 048
     Dates: start: 20110711
  2. MEDROL [Suspect]
     Dosage: 1/2 PILL EVERY OTHER DAY UNTIL DONE
     Route: 048
  3. HUMIRA [Suspect]
     Indication: RHEUMATOID ARTHRITIS
     Route: 058
     Dates: start: 20110601
  4. IBUPROFEN [Concomitant]
     Indication: ARTHRALGIA
     Route: 048
  5. METHOTREXATE [Suspect]
     Indication: RHEUMATOID ARTHRITIS
     Dates: start: 20110401

REACTIONS (2)
  - SINUS CONGESTION [None]
  - RHINORRHOEA [None]
